FAERS Safety Report 13737668 (Version 1)
Quarter: 2017Q3

REPORT INFORMATION
  Report Type: Report from Study
  Country: US (occurrence: US)
  Receive Date: 20170710
  Receipt Date: 20170710
  Transmission Date: 20171127
  Serious: No
  Sender: FDA-Public Use
  Company Number: US-SAOL THERAPEUTICS-2016SAO00300

PATIENT
  Age: 58 Year
  Sex: Male

DRUGS (10)
  1. COMPOUNDED BACLOFEN [Suspect]
     Active Substance: BACLOFEN
     Dosage: 149.82 ?G, \DAY
     Route: 037
     Dates: start: 20160309, end: 20160316
  2. BUPIVACAINE. [Suspect]
     Active Substance: BUPIVACAINE
     Dosage: 8.0905 MG, \DAY
     Route: 037
     Dates: start: 20160309, end: 20160316
  3. DILAUDID [Suspect]
     Active Substance: HYDROMORPHONE HYDROCHLORIDE
     Dosage: 1.2501 MG, \DAY
     Route: 037
     Dates: start: 20160316
  4. COMPOUNDED BACLOFEN [Suspect]
     Active Substance: BACLOFEN
     Dosage: 125.01 ?G, \DAY
     Route: 037
     Dates: start: 20160316
  5. OXYCODONE [Concomitant]
     Active Substance: OXYCODONE
  6. CLONIDINE. [Suspect]
     Active Substance: CLONIDINE
     Dosage: 74.912 ?G, \DAY
     Route: 037
     Dates: start: 20160309, end: 20160316
  7. BUPIVACAINE. [Suspect]
     Active Substance: BUPIVACAINE
     Dosage: 7.501 MG, \DAY
     Route: 037
     Dates: start: 20160316
  8. DILAUDID [Suspect]
     Active Substance: HYDROMORPHONE HYDROCHLORIDE
     Dosage: 1.4982 MG, \DAY
     Route: 037
     Dates: start: 20160309, end: 20160316
  9. OXYCONTIN [Concomitant]
     Active Substance: OXYCODONE HYDROCHLORIDE
  10. CLONIDINE. [Suspect]
     Active Substance: CLONIDINE
     Dosage: 62.51 ?G, \DAY
     Route: 037
     Dates: start: 20160316

REACTIONS (3)
  - Pollakiuria [Recovered/Resolved]
  - Dizziness [Recovered/Resolved]
  - Vomiting [Recovered/Resolved]

NARRATIVE: CASE EVENT DATE: 20160316
